FAERS Safety Report 6026992-5 (Version None)
Quarter: 2009Q1

REPORT INFORMATION
  Report Type: 
  Country: None (occurrence: None)
  Receive Date: 20090105
  Receipt Date: 20081224
  Transmission Date: 20090719
  Serious: Yes (Life-Threatening)
  Sender: FDA-Public Use
  Company Number: JP-PFIZER INC-2007048973

PATIENT
  Sex: Male

DRUGS (9)
  1. DILTIAZEM HYDROCHLORIDE [Suspect]
     Indication: HYPERTENSION
     Dosage: 100 MG, 1X/DAY
     Route: 048
     Dates: start: 20070515, end: 20070602
  2. DILTIAZEM HYDROCHLORIDE [Suspect]
     Indication: HEART RATE ABNORMAL
  3. ARTIST [Suspect]
     Route: 048
  4. BLOPRESS [Suspect]
     Route: 048
  5. NORMONAL [Suspect]
     Route: 048
  6. ADALAT CC [Suspect]
     Route: 048
  7. WARFARIN POTASSIUM [Concomitant]
     Route: 048
  8. ALLOZYM [Concomitant]
     Route: 048
  9. JUVELA NICOTINATE [Concomitant]
     Route: 048

REACTIONS (3)
  - BRADYCARDIA [None]
  - CARDIAC ARREST [None]
  - SHOCK [None]
